FAERS Safety Report 17840514 (Version 1)
Quarter: 2020Q2

REPORT INFORMATION
  Report Type: Report from Study
  Country: IT (occurrence: IT)
  Receive Date: 20200529
  Receipt Date: 20200529
  Transmission Date: 20200714
  Serious: Yes (Life-Threatening)
  Sender: FDA-Public Use
  Company Number: IT-ROCHE-2609978

PATIENT

DRUGS (2)
  1. TOCILIZUMAB. [Suspect]
     Active Substance: TOCILIZUMAB
     Indication: COVID-19 PNEUMONIA
     Dosage: 8 MG/KG (UP TO A MAXIMUM OF 800 MG PER DOSE), WITH AN INTERVAL OF 12 HOURS.?ON 23/MAR/2020, THE PATI
     Route: 042
  2. NORADRENALINE [NOREPINEPHRINE] [Concomitant]
     Active Substance: NOREPINEPHRINE
     Dosage: 0.03 MCG/KG/MIN
     Route: 065

REACTIONS (1)
  - Distributive shock [Not Recovered/Not Resolved]

NARRATIVE: CASE EVENT DATE: 20200407
